FAERS Safety Report 5916143-7 (Version None)
Quarter: 2008Q4

REPORT INFORMATION
  Report Type: 
  Country: None (occurrence: None)
  Receive Date: 20081009
  Receipt Date: 20080930
  Transmission Date: 20090506
  Serious: Yes (Hospitalization, Other)
  Sender: FDA-Public Use
  Company Number: 2007BI025712

PATIENT
  Age: 47 Year
  Sex: Female

DRUGS (3)
  1. TYSABRI [Suspect]
     Indication: MULTIPLE SCLEROSIS
     Dosage: 300 MG ;QM; IV
     Route: 042
     Dates: start: 20070816, end: 20071214
  2. . [Concomitant]
  3. . [Concomitant]

REACTIONS (3)
  - CERVIX CARCINOMA [None]
  - ENDOMETRIAL CANCER STAGE I [None]
  - OVARIAN CANCER [None]
